FAERS Safety Report 12893568 (Version 1)
Quarter: 2016Q4

REPORT INFORMATION
  Report Type: Spontaneous
  Country: US (occurrence: US)
  Receive Date: 20161027
  Receipt Date: 20161027
  Transmission Date: 20170207
  Serious: Yes (Other)
  Sender: FDA-Public Use
  Company Number: None

PATIENT
  Age: 29 Year
  Sex: Female
  Weight: 63 kg

DRUGS (5)
  1. ZONEGRAN [Suspect]
     Active Substance: ZONISAMIDE
     Indication: PAIN
     Dates: start: 20161010, end: 20161025
  2. HYDROCODONE [Concomitant]
     Active Substance: HYDROCODONE
  3. ATIVAN [Concomitant]
     Active Substance: LORAZEPAM
  4. AMITRYPTILINE [Concomitant]
     Active Substance: AMITRIPTYLINE
  5. TRAMADOL. [Concomitant]
     Active Substance: TRAMADOL

REACTIONS (3)
  - Suicidal ideation [None]
  - Anxiety [None]
  - Major depression [None]

NARRATIVE: CASE EVENT DATE: 20161021
